FAERS Safety Report 5008875-2 (Version None)
Quarter: 2006Q2

REPORT INFORMATION
  Report Type: 
  Country: None (occurrence: None)
  Receive Date: 20060518
  Receipt Date: 20060502
  Transmission Date: 20061013
  Serious: Yes (Hospitalization)
  Sender: FDA-Public Use
  Company Number: VER_0010_2006

PATIENT
  Age: 45 Year
  Sex: Male

DRUGS (1)
  1. EPINEPHRINE INJECTION (TWINJECT) [Suspect]
     Indication: HYPERSENSITIVITY
     Dosage: 1 DF TWICE SC
     Route: 058
     Dates: start: 20060430, end: 20060430

REACTIONS (2)
  - DEVICE FAILURE [None]
  - PHARMACEUTICAL PRODUCT COMPLAINT [None]
